FAERS Safety Report 8170661-2 (Version None)
Quarter: 2012Q1

REPORT INFORMATION
  Report Type: 
  Country: None (occurrence: None)
  Receive Date: 20120104
  Receipt Date: 20111020
  Transmission Date: 20120608
  Serious: No
  Sender: FDA-Public Use
  Company Number: 2011HGS-002669

PATIENT
  Age: 30 Year
  Sex: Female
  Weight: 55.3388 kg

DRUGS (6)
  1. TOPAMAX [Concomitant]
  2. MELOXICAM [Concomitant]
  3. PLAQUENIL [Concomitant]
  4. MEDROL [Concomitant]
  5. POTASSIUM CHLORIDE [Concomitant]
  6. BENLYSTA [Suspect]
     Indication: SYSTEMIC LUPUS ERYTHEMATOSUS
     Dosage: 10 MG/KG, EVERY 2 WEEKS X 3 THEN EVERY 4 WEEKS, INTRAVENOUS DRIP
     Route: 041
     Dates: start: 20110915, end: 20111001

REACTIONS (2)
  - PYREXIA [None]
  - GASTROENTERITIS VIRAL [None]
